FAERS Safety Report 8006767-8 (Version None)
Quarter: 2011Q4

REPORT INFORMATION
  Report Type: 
  Country: None (occurrence: None)
  Receive Date: 20111227
  Receipt Date: 20111215
  Transmission Date: 20120403
  Serious: Yes (Other)
  Sender: FDA-Public Use
  Company Number: US-BAYER-2011-044790

PATIENT
  Age: 36 Year
  Sex: Female
  Weight: 74.83 kg

DRUGS (19)
  1. ALESSE [Concomitant]
     Indication: CONTRACEPTION
     Dosage: UNK UNK, QD
     Route: 048
     Dates: start: 20050101
  2. TUSSIONEX [Concomitant]
     Dosage: UNK
     Dates: start: 20100123
  3. DEPO-MEDROL [Concomitant]
     Dosage: 80 MG, UNK
     Route: 030
     Dates: start: 20100128
  4. BELLA ALK [Concomitant]
     Dosage: UNK
     Dates: start: 20100302
  5. YASMIN [Suspect]
     Dosage: UNK
     Dates: start: 20091201, end: 20100101
  6. DECADRON [Concomitant]
     Dosage: UNK
     Route: 030
     Dates: start: 20100128
  7. DROSPIRENONE AND ETHINYL ESTRADIOL [Suspect]
     Dosage: UNK
     Dates: start: 20090514, end: 20091201
  8. CYMBALTA [Concomitant]
     Indication: DEPRESSION
     Dosage: UNK
     Dates: start: 20050101, end: 20100101
  9. AUGMENTIN [Concomitant]
     Dosage: UNK
     Dates: start: 20101028
  10. PHENERGAN [Concomitant]
     Indication: NAUSEA
     Dosage: UNK
     Dates: start: 20090601, end: 20110401
  11. PROMETH/COD 6.25-10 [Concomitant]
  12. HYDROCODONE [Concomitant]
     Indication: NAUSEA
     Dosage: UNK
     Dates: start: 20100301
  13. TRAZODONE HCL [Concomitant]
     Dosage: 100 MG, UNK
     Dates: start: 20100118
  14. AZITHROMYCIN [Concomitant]
     Dosage: 250 MG, UNK
     Dates: start: 20100123
  15. MOTRIN [Concomitant]
  16. LAMICTAL [Concomitant]
     Indication: DEPRESSION
     Dosage: UNK
     Dates: start: 20060101
  17. ALBUTEROL [Concomitant]
     Dosage: UNK
  18. YAZ [Concomitant]
  19. ALBUTEROL [Concomitant]
     Dosage: 90 UNK, UNK
     Dates: start: 20100125

REACTIONS (7)
  - VOMITING [None]
  - FOOD INTOLERANCE [None]
  - ABDOMINAL PAIN [None]
  - CHOLECYSTITIS CHRONIC [None]
  - NAUSEA [None]
  - GALLBLADDER DISORDER [None]
  - PAIN [None]
